FAERS Safety Report 8945543 (Version 1)
Quarter: 2012Q4

REPORT INFORMATION
  Report Type: 
  Country: US (occurrence: US)
  Receive Date: 20121204
  Receipt Date: 20121204
  Transmission Date: 20130627
  Serious: No
  Sender: FDA-Public Use
  Company Number: US-AMGEN-USASP2012074155

PATIENT
  Age: 47 Year
  Sex: Male

DRUGS (1)
  1. ENBREL [Suspect]
     Indication: RHEUMATOID ARTHRITIS
     Dosage: 50 mg, qwk
     Dates: start: 20050826

REACTIONS (4)
  - Device failure [Not Recovered/Not Resolved]
  - Toothache [Not Recovered/Not Resolved]
  - Dental discomfort [Not Recovered/Not Resolved]
  - Sensitivity of teeth [Not Recovered/Not Resolved]
